FAERS Safety Report 25322542 (Version 1)
Quarter: 2025Q2

REPORT INFORMATION
  Report Type: Report from Study
  Country: CA (occurrence: CA)
  Receive Date: 20250516
  Receipt Date: 20250516
  Transmission Date: 20250716
  Serious: Yes (Other)
  Sender: ABBVIE
  Company Number: CA-ABBVIE-6281287

PATIENT
  Sex: Female

DRUGS (1)
  1. RINVOQ [Suspect]
     Active Substance: UPADACITINIB
     Indication: Rheumatoid arthritis
     Dosage: TAKE 15MG (1 TABLET) ONCE DAILY. FORM STRENGTH: 15 MG
     Route: 048
     Dates: start: 20240724

REACTIONS (1)
  - Knee arthroplasty [Recovering/Resolving]
